FAERS Safety Report 8610123-9 (Version None)
Quarter: 2012Q3

REPORT INFORMATION
  Report Type: 
  Country: None (occurrence: None)
  Receive Date: 20120822
  Receipt Date: 20120814
  Transmission Date: 20120928
  Serious: No
  Sender: FDA-Public Use
  Company Number: US-BIOGENIDEC-2012BI031635

PATIENT
  Age: 53 Year
  Sex: Female

DRUGS (3)
  1. TYSABRI [Suspect]
     Indication: MULTIPLE SCLEROSIS
     Route: 042
     Dates: start: 20120425
  2. VITAMIN D [Concomitant]
     Indication: VITAMIN D DEFICIENCY
  3. VITAMIN B INJECTION [Concomitant]

REACTIONS (4)
  - FATIGUE [None]
  - HEADACHE [None]
  - TREMOR [None]
  - DIARRHOEA [None]
